FAERS Safety Report 8370137-3 (Version None)
Quarter: 2012Q2

REPORT INFORMATION
  Report Type: 
  Country: None (occurrence: None)
  Receive Date: 20120518
  Receipt Date: 20120515
  Transmission Date: 20120825
  Serious: No
  Sender: FDA-Public Use
  Company Number: US-PFIZER INC-2012118025

PATIENT
  Sex: Male
  Weight: 84 kg

DRUGS (6)
  1. SIMVASTATIN [Suspect]
     Dosage: 80 MG, DAILY
     Dates: end: 20111201
  2. PLAVIX [Concomitant]
     Dosage: 75 MG, DAILY
  3. METOPROLOL [Concomitant]
     Indication: HYPERTENSION
     Dosage: 25 MG, DAILY
  4. SIMVASTATIN [Suspect]
     Dosage: UNK
     Dates: start: 20080101
  5. LIPITOR [Suspect]
     Dosage: 40 MG, DAILY
     Dates: start: 20111201
  6. COENZYME Q10 [Suspect]
     Indication: ARTHRALGIA
     Dosage: UNK

REACTIONS (2)
  - ARTHRALGIA [None]
  - DRUG INEFFECTIVE [None]
